FAERS Safety Report 23065328 (Version 1)
Quarter: 2023Q4

REPORT INFORMATION
  Report Type: Spontaneous
  Country: BR (occurrence: BR)
  Receive Date: 20231013
  Receipt Date: 20231013
  Transmission Date: 20240110
  Serious: Yes (Other)
  Sender: FDA-Public Use
  Company Number: BR-PFIZER INC-202300316105

PATIENT
  Sex: Female

DRUGS (1)
  1. ALDACTONE [Suspect]
     Active Substance: SPIRONOLACTONE
     Dosage: UNK

REACTIONS (6)
  - Pericardial effusion [Unknown]
  - Cerebrovascular accident [Unknown]
  - Road traffic accident [Unknown]
  - Ear disorder [Recovering/Resolving]
  - Illness [Unknown]
  - Therapeutic response unexpected [Unknown]
